FAERS Safety Report 15936949 (Version 5)
Quarter: 2019Q3

REPORT INFORMATION
  Report Type: Spontaneous
  Country: US (occurrence: US)
  Receive Date: 20190208
  Receipt Date: 20190730
  Transmission Date: 20191004
  Serious: Yes (Other)
  Sender: FDA-Public Use
  Company Number: US-ASTRAZENECA-2018SF21035

PATIENT
  Age: 26346 Day
  Sex: Male
  Weight: 106.6 kg

DRUGS (28)
  1. TIZANIDINE. [Concomitant]
     Active Substance: TIZANIDINE
  2. NEXIUM 24HR [Suspect]
     Active Substance: ESOMEPRAZOLE MAGNESIUM
     Dosage: 20 MG DAILY
     Route: 048
  3. PRILOSEC OTC [Suspect]
     Active Substance: OMEPRAZOLE MAGNESIUM
     Indication: DYSPEPSIA
     Route: 048
     Dates: start: 20141126, end: 20170427
  4. LEVETIRACETAM. [Concomitant]
     Active Substance: LEVETIRACETAM
  5. SIMVASTATIN. [Concomitant]
     Active Substance: SIMVASTATIN
     Indication: TYPE V HYPERLIPIDAEMIA
  6. NEXIUM [Suspect]
     Active Substance: ESOMEPRAZOLE MAGNESIUM
     Route: 048
  7. PRILOSEC [Suspect]
     Active Substance: OMEPRAZOLE MAGNESIUM
     Indication: DYSPEPSIA
     Route: 048
  8. PRILOSEC [Suspect]
     Active Substance: OMEPRAZOLE MAGNESIUM
     Indication: DYSPEPSIA
     Dosage: 40 MG DAILY
     Route: 048
     Dates: start: 200509, end: 201808
  9. PRILOSEC [Suspect]
     Active Substance: OMEPRAZOLE MAGNESIUM
     Indication: DYSPEPSIA
     Dosage: GENERIC
     Route: 065
     Dates: start: 20090219, end: 20180830
  10. FUROSEMIDE. [Concomitant]
     Active Substance: FUROSEMIDE
     Indication: FLUID RETENTION
     Dates: start: 2014, end: 2016
  11. CLOPIDOGREL [Concomitant]
     Active Substance: CLOPIDOGREL BISULFATE
  12. NAPROXEN. [Concomitant]
     Active Substance: NAPROXEN
  13. RANITIDINE. [Concomitant]
     Active Substance: RANITIDINE
  14. ASPIRIN. [Concomitant]
     Active Substance: ASPIRIN
  15. AMLODIPINE [Concomitant]
     Active Substance: AMLODIPINE BESYLATE
  16. PRILOSEC [Suspect]
     Active Substance: OMEPRAZOLE MAGNESIUM
     Indication: DYSPEPSIA
     Route: 048
     Dates: start: 20090219, end: 20180830
  17. PRILOSEC OTC [Suspect]
     Active Substance: OMEPRAZOLE MAGNESIUM
     Indication: DYSPEPSIA
     Dosage: 20 MG DAILY
     Route: 048
     Dates: start: 200509, end: 201808
  18. PREVACID [Suspect]
     Active Substance: LANSOPRAZOLE
     Indication: DYSPEPSIA
     Route: 065
     Dates: start: 20050913, end: 20080102
  19. PLAVIX [Concomitant]
     Active Substance: CLOPIDOGREL BISULFATE
  20. LINAGLIPTIN [Concomitant]
     Active Substance: LINAGLIPTIN
  21. CHLORTHALIDONE. [Concomitant]
     Active Substance: CHLORTHALIDONE
  22. PREGABALIN. [Concomitant]
     Active Substance: PREGABALIN
  23. FENOFIBRATE. [Concomitant]
     Active Substance: FENOFIBRATE
  24. PREVACID [Suspect]
     Active Substance: LANSOPRAZOLE
     Indication: DYSPEPSIA
     Dosage: 40 MG DAILY
     Route: 065
     Dates: start: 200509, end: 201808
  25. PREVACID 24 HR [Suspect]
     Active Substance: LANSOPRAZOLE
     Dosage: 15 MG DAILY
     Route: 065
  26. METOPROLOL. [Concomitant]
     Active Substance: METOPROLOL
     Indication: BLOOD PRESSURE MEASUREMENT
  27. OXYCODONE-ACETAMINOPHEN [Concomitant]
     Active Substance: ACETAMINOPHEN\OXYCODONE HYDROCHLORIDE
     Indication: PAIN
  28. PEPCID [Concomitant]
     Active Substance: FAMOTIDINE

REACTIONS (4)
  - Hyperparathyroidism secondary [Unknown]
  - Chronic kidney disease [Recovered/Resolved]
  - Renal failure [Unknown]
  - Renal injury [Unknown]

NARRATIVE: CASE EVENT DATE: 20140812
